FAERS Safety Report 22183127 (Version 1)
Quarter: 2023Q2

REPORT INFORMATION
  Report Type: Spontaneous
  Country: US (occurrence: US)
  Receive Date: 20230406
  Receipt Date: 20230406
  Transmission Date: 20230722
  Serious: No
  Sender: FDA-Public Use
  Company Number: US-Evolus, Inc.-2022EV000373

PATIENT
  Age: 63 Year
  Sex: Female

DRUGS (1)
  1. JEUVEAU [Suspect]
     Active Substance: PRABOTULINUMTOXINA-XVFS
     Indication: Skin wrinkling
     Dosage: 4 UNITS IN 5 INJECTION SITES
     Dates: start: 20221129, end: 20221129

REACTIONS (1)
  - Brow ptosis [Unknown]

NARRATIVE: CASE EVENT DATE: 20221208
